FAERS Safety Report 8281692-6 (Version None)
Quarter: 2012Q2

REPORT INFORMATION
  Report Type: 
  Country: None (occurrence: None)
  Receive Date: 20120413
  Receipt Date: 20120410
  Transmission Date: 20120825
  Serious: Yes (Other)
  Sender: FDA-Public Use
  Company Number: US-JNJFOC-20120404855

PATIENT
  Age: 65 Year
  Sex: Male
  Weight: 102.06 kg

DRUGS (7)
  1. MULTI-VITAMINS [Concomitant]
     Indication: GENERAL PHYSICAL CONDITION
     Route: 065
  2. MINOXIDIL [Suspect]
     Indication: HAIR GROWTH ABNORMAL
     Route: 061
     Dates: start: 20120101, end: 20120401
  3. FLAX SEED OIL [Concomitant]
     Indication: GENERAL PHYSICAL CONDITION
     Route: 065
  4. MINOXIDIL [Suspect]
     Route: 061
  5. FISH OIL [Concomitant]
     Indication: GENERAL PHYSICAL CONDITION
     Route: 065
  6. VITAMIN B COMPLEX CAP [Concomitant]
     Indication: GENERAL PHYSICAL CONDITION
     Route: 065
  7. CAL-MAG [Concomitant]
     Indication: GENERAL PHYSICAL CONDITION
     Route: 065

REACTIONS (9)
  - ERYTHEMA [None]
  - WRONG TECHNIQUE IN DRUG USAGE PROCESS [None]
  - SWELLING FACE [None]
  - SKIN EXFOLIATION [None]
  - ACCIDENTAL EXPOSURE [None]
  - PRURITUS [None]
  - BURNING SENSATION [None]
  - APPLICATION SITE REACTION [None]
  - EYE SWELLING [None]
